FAERS Safety Report 13841353 (Version 2)
Quarter: 2017Q4

REPORT INFORMATION
  Report Type: Spontaneous
  Country: US (occurrence: US)
  Receive Date: 20170807
  Receipt Date: 20171030
  Transmission Date: 20180320
  Serious: No
  Sender: FDA-Public Use
  Company Number: US-LEXICON PHARMACEUTICALS, INC-17-1606-00527

PATIENT
  Age: 75 Year
  Sex: Male

DRUGS (25)
  1. TELOTRISTAT ETHYL [Suspect]
     Active Substance: TELOTRISTAT ETHYL
     Indication: CARCINOID SYNDROME
     Route: 048
     Dates: start: 20170609, end: 2017
  2. OMEPRAZOLE. [Concomitant]
     Active Substance: OMEPRAZOLE
  3. VIAGRA [Concomitant]
     Active Substance: SILDENAFIL CITRATE
  4. NORCO [Concomitant]
     Active Substance: ACETAMINOPHEN\HYDROCODONE BITARTRATE
  5. MULTIVITAMIN ADULT [Concomitant]
  6. TAMSULOSIN [Concomitant]
     Active Substance: TAMSULOSIN
  7. TELOTRISTAT ETHYL [Suspect]
     Active Substance: TELOTRISTAT ETHYL
     Route: 048
     Dates: start: 2017
  8. BACLOFEN. [Concomitant]
     Active Substance: BACLOFEN
  9. DICLOFENAC POTASSIUM. [Concomitant]
     Active Substance: DICLOFENAC POTASSIUM
  10. SOMATULINE DEPOT [Concomitant]
     Active Substance: LANREOTIDE ACETATE
  11. TEMAZEPAM. [Concomitant]
     Active Substance: TEMAZEPAM
  12. VALSARTAN. [Concomitant]
     Active Substance: VALSARTAN
  13. TOPROL XL [Concomitant]
     Active Substance: METOPROLOL SUCCINATE
  14. CENTRUM [Concomitant]
     Active Substance: VITAMINS
  15. ELIQUIS [Concomitant]
     Active Substance: APIXABAN
  16. CREON [Concomitant]
     Active Substance: PANCRELIPASE AMYLASE\PANCRELIPASE LIPASE\PANCRELIPASE PROTEASE
  17. SODIUM HYALURONATE [Concomitant]
     Active Substance: HYALURONATE SODIUM
  18. GLUCOSAMINE CHONDROITIN MSM COMPLEX [Concomitant]
  19. URSODIOL. [Concomitant]
     Active Substance: URSODIOL
  20. LIDOCAINE. [Concomitant]
     Active Substance: LIDOCAINE
  21. METRONIDAZOLE. [Concomitant]
     Active Substance: METRONIDAZOLE
  22. POTASSIUM CHLORIDE. [Concomitant]
     Active Substance: POTASSIUM CHLORIDE
  23. CHOLESTYRAMINE. [Concomitant]
     Active Substance: CHOLESTYRAMINE
  24. HALCION [Concomitant]
     Active Substance: TRIAZOLAM
  25. ZOLPIDEM TARTRATE. [Concomitant]
     Active Substance: ZOLPIDEM TARTRATE

REACTIONS (1)
  - Diarrhoea [Unknown]

NARRATIVE: CASE EVENT DATE: 201706
